FAERS Safety Report 19797381 (Version 1)
Quarter: 2021Q3

REPORT INFORMATION
  Report Type: Spontaneous
  Country: US (occurrence: US)
  Receive Date: 20210907
  Receipt Date: 20210907
  Transmission Date: 20211014
  Serious: Yes (Hospitalization)
  Sender: FDA-Public Use
  Company Number: US-STRIDES ARCOLAB LIMITED-2019SP002998

PATIENT
  Age: 70 Year
  Sex: Male

DRUGS (4)
  1. PREDNISOLONE. [Suspect]
     Active Substance: PREDNISOLONE
     Indication: RHEUMATOID ARTHRITIS
     Dosage: 10 MILLIGRAM DAILY
     Route: 065
  2. METHOTREXATE. [Suspect]
     Active Substance: METHOTREXATE
     Indication: SARCOIDOSIS
  3. METHOTREXATE. [Suspect]
     Active Substance: METHOTREXATE
     Indication: RHEUMATOID ARTHRITIS
     Dosage: 17.5 MILLIGRAM, ONCE A WEEK
     Route: 065
  4. PREDNISOLONE. [Suspect]
     Active Substance: PREDNISOLONE
     Indication: SARCOIDOSIS

REACTIONS (11)
  - Bacteraemia [Unknown]
  - Gastric ulcer [Unknown]
  - Capnocytophaga infection [Unknown]
  - Pneumonia [Unknown]
  - Duodenal ulcer [Unknown]
  - Urinary tract infection [Unknown]
  - Septic shock [Unknown]
  - Escherichia infection [Unknown]
  - Pyrexia [Recovered/Resolved]
  - Hypotension [Recovered/Resolved]
  - Gastrointestinal haemorrhage [Unknown]
